FAERS Safety Report 8139216-X (Version None)
Quarter: 2012Q1

REPORT INFORMATION
  Report Type: 
  Country: None (occurrence: None)
  Receive Date: 20120215
  Receipt Date: 20120208
  Transmission Date: 20120608
  Serious: Yes (Other)
  Sender: FDA-Public Use
  Company Number: US-PFIZER INC-2012008897

PATIENT
  Sex: Female
  Weight: 66.213 kg

DRUGS (7)
  1. EVISTA [Concomitant]
     Indication: BONE DENSITY DECREASED
     Dosage: 60 MG, 1X/DAY
  2. TOPROL-XL [Concomitant]
     Dosage: 12.5 MG, 1X/DAY
  3. WARFARIN SODIUM [Concomitant]
     Indication: ATRIAL FIBRILLATION
     Dosage: 5 MG, UNK
  4. EVISTA [Concomitant]
     Dosage: 70 MG, UNK
  5. TOVIAZ [Suspect]
     Indication: BLADDER DISORDER
     Dosage: 4 MG, 1X/DAY
     Route: 048
     Dates: start: 20111118
  6. TOVIAZ [Suspect]
     Indication: POLLAKIURIA
  7. TOVIAZ [Suspect]

REACTIONS (7)
  - HEADACHE [None]
  - PROTEIN TOTAL DECREASED [None]
  - VISION BLURRED [None]
  - POLLAKIURIA [None]
  - INSOMNIA [None]
  - ASTHENIA [None]
  - DECREASED ACTIVITY [None]
